FAERS Safety Report 23100925 (Version 5)
Quarter: 2024Q1

REPORT INFORMATION
  Report Type: Report from Study
  Country: CN (occurrence: CN)
  Receive Date: 20231024
  Receipt Date: 20240212
  Transmission Date: 20240409
  Serious: Yes (Other)
  Sender: FDA-Public Use
  Company Number: CN-FOSUNKITE-FOSUNKITE-20231182

PATIENT
  Age: 61 Year
  Sex: Male

DRUGS (10)
  1. AXICABTAGENE CILOLEUCEL [Suspect]
     Active Substance: AXICABTAGENE CILOLEUCEL
     Indication: B-cell lymphoma
     Dosage: 1.3?10^8 CELLS (NUMBER OF CAR-T CELLS)
     Route: 042
     Dates: start: 20230831, end: 20230831
  2. CYCLOPHOSPHAMIDE [Suspect]
     Active Substance: CYCLOPHOSPHAMIDE
     Indication: Lymphodepletion
     Dosage: 890 MG
     Route: 042
     Dates: start: 20230826, end: 20230828
  3. FLUDARABINE PHOSPHATE [Suspect]
     Active Substance: FLUDARABINE PHOSPHATE
     Indication: Lymphodepletion
     Dosage: 50 MG
     Route: 042
     Dates: start: 20230826, end: 20230828
  4. ZANUBRUTINIB [Concomitant]
     Active Substance: ZANUBRUTINIB
     Indication: Non-Hodgkin^s lymphoma
     Dosage: UNK
     Dates: start: 20230823, end: 20230831
  5. ZANUBRUTINIB [Concomitant]
     Active Substance: ZANUBRUTINIB
     Dosage: UNK
     Dates: start: 20230901
  6. HUMAN IMMUNOGLOBULIN G [Concomitant]
     Active Substance: HUMAN IMMUNOGLOBULIN G
     Indication: Supplementation therapy
     Dosage: 10 G, QD
     Route: 042
     Dates: start: 20230824, end: 20230829
  7. RITUXIMAB [Concomitant]
     Active Substance: RITUXIMAB
     Dosage: 700 MG , TREATMENT CYCLE WAS 1
     Route: 041
     Dates: start: 20230730
  8. GEMCITABINE [Concomitant]
     Active Substance: GEMCITABINE
     Dosage: (1.83 G, TREATMENT CYCLE WAS 1, IVGTT),
     Route: 041
     Dates: start: 20230731
  9. OXALIPLATIN [Concomitant]
     Active Substance: OXALIPLATIN
     Dosage: 183 MG TREATMENT CYCLE 1
     Route: 041
     Dates: start: 20230731
  10. POLIVY [Concomitant]
     Active Substance: POLATUZUMAB VEDOTIN-PIIQ
     Dosage: 120 MG
     Route: 041
     Dates: start: 20230731

REACTIONS (28)
  - Systemic inflammatory response syndrome [Not Recovered/Not Resolved]
  - Hypokalaemia [Recovered/Resolved]
  - Hypoxia [Recovered/Resolved]
  - Cytokine release syndrome [Recovered/Resolved]
  - White blood cell count decreased [Not Recovered/Not Resolved]
  - Neutrophil count decreased [Not Recovered/Not Resolved]
  - Lymphocyte count decreased [Recovering/Resolving]
  - Anaemia [Not Recovered/Not Resolved]
  - Platelet count decreased [Not Recovered/Not Resolved]
  - Cytokine increased [Not Recovered/Not Resolved]
  - Myalgia [Recovered/Resolved]
  - Blood alkaline phosphatase increased [Recovered/Resolved]
  - C-reactive protein increased [Recovered/Resolved]
  - Chest discomfort [Recovered/Resolved]
  - Hypomagnesaemia [Not Recovered/Not Resolved]
  - Serum ferritin increased [Not Recovered/Not Resolved]
  - Rash [Recovered/Resolved]
  - Pain in extremity [Recovered/Resolved]
  - Viral infection [Not Recovered/Not Resolved]
  - Malnutrition [Recovered/Resolved]
  - Erythema [Recovered/Resolved]
  - Erythema [Recovered/Resolved]
  - Purpura [Recovered/Resolved]
  - Hypoaesthesia [Recovered/Resolved]
  - Pain in extremity [Recovered/Resolved]
  - Skin lesion [Recovered/Resolved]
  - Skin lesion [Not Recovered/Not Resolved]
  - Blood bilirubin increased [Recovered/Resolved]

NARRATIVE: CASE EVENT DATE: 20230901
